FAERS Safety Report 18863586 (Version 1)
Quarter: 2021Q1

REPORT INFORMATION
  Report Type: Spontaneous
  Country: PT (occurrence: PT)
  Receive Date: 20210209
  Receipt Date: 20210209
  Transmission Date: 20210420
  Serious: Yes (Hospitalization, Other)
  Sender: FDA-Public Use
  Company Number: PT-AUROBINDO-AUR-APL-2019-060952

PATIENT
  Age: 43 Year
  Sex: Female

DRUGS (1)
  1. TERBINAFINA HYDROCHLORIDE TABLETS 250MG [Suspect]
     Active Substance: TERBINAFINE HYDROCHLORIDE
     Indication: ONYCHOMYCOSIS
     Dosage: 1 DOSAGE FORM, DAILY
     Route: 048

REACTIONS (3)
  - Rash pruritic [Recovered/Resolved]
  - Erythema multiforme [Recovered/Resolved]
  - Skin lesion [Recovered/Resolved]
